FAERS Safety Report 12204677 (Version 4)
Quarter: 2016Q2

REPORT INFORMATION
  Report Type: Report from Study
  Country: IT (occurrence: IT)
  Receive Date: 20160323
  Receipt Date: 20160530
  Transmission Date: 20160815
  Serious: Yes (Other)
  Sender: FDA-Public Use
  Company Number: IT-BRISTOL-MYERS SQUIBB COMPANY-BMS-2015-089195

PATIENT
  Age: 69 Year
  Sex: Female
  Weight: 59 kg

DRUGS (3)
  1. NIVOLUMAB [Suspect]
     Active Substance: NIVOLUMAB
     Dosage: 3 MG/KG, UNK
     Route: 042
     Dates: start: 20160128, end: 20160509
  2. NIVOLUMAB [Suspect]
     Active Substance: NIVOLUMAB
     Dosage: 3 MG/KG, UNK
     Route: 042
     Dates: start: 20151224, end: 20151224
  3. NIVOLUMAB [Suspect]
     Active Substance: NIVOLUMAB
     Indication: NON-SMALL CELL LUNG CANCER
     Dosage: 3 MG/KG, Q2WK
     Route: 042
     Dates: start: 20151210, end: 20151210

REACTIONS (7)
  - Malignant neoplasm progression [Unknown]
  - Hypertransaminasaemia [Unknown]
  - Skin mass [Unknown]
  - Cholestasis [Recovered/Resolved]
  - Laboratory test abnormal [Unknown]
  - Cough [Unknown]
  - Hypophosphataemia [Unknown]

NARRATIVE: CASE EVENT DATE: 20160223
